FAERS Safety Report 17972357 (Version 2)
Quarter: 2020Q3

REPORT INFORMATION
  Report Type: Report from Study
  Country: US (occurrence: US)
  Receive Date: 20200702
  Receipt Date: 20200806
  Transmission Date: 20201103
  Serious: Yes (Other)
  Sender: FDA-Public Use
  Company Number: US-ROCHE-2633707

PATIENT
  Age: 56 Year
  Sex: Female

DRUGS (3)
  1. PEGYLATED LIPOSOMAL DOXORUBICIN [Suspect]
     Active Substance: DOXORUBICIN
     Indication: OVARIAN CANCER
     Dosage: CYCLE: 28 DAYS PLD 4
     Route: 042
     Dates: start: 20190426
  2. ATEZOLIZUMAB. [Suspect]
     Active Substance: ATEZOLIZUMAB
     Indication: OVARIAN CANCER
     Dosage: 800 MG IV OVER 1 HOUR ON DAYS 1 AND 15. ON SAME DAY, RECEIVED LAST ADMINISTRATION OF ATEZOLIZUMAB.
     Route: 042
     Dates: start: 20190426
  3. BEVACIZUMAB. [Suspect]
     Active Substance: BEVACIZUMAB
     Indication: OVARIAN CANCER
     Dosage: 10 MG/KG IV OVER 90 MINUTES ON DAYS 1 AND 15
     Route: 042
     Dates: start: 20190426

REACTIONS (1)
  - Episcleritis [Recovered/Resolved]

NARRATIVE: CASE EVENT DATE: 20190504
